FAERS Safety Report 13298120 (Version 1)
Quarter: 2017Q1

REPORT INFORMATION
  Report Type: Spontaneous
  Country: AT (occurrence: AT)
  Receive Date: 20170306
  Receipt Date: 20170306
  Transmission Date: 20170428
  Serious: Yes (Other)
  Sender: FDA-Public Use
  Company Number: AT-CELGENEUS-AUT-2017026905

PATIENT
  Age: 66 Year
  Sex: Male

DRUGS (5)
  1. G-CSF [Concomitant]
     Active Substance: GRANULOCYTE COLONY-STIMULATING FACTOR NOS
     Dosage: RATIO 30 MIO ONCE WEEKLY
     Route: 065
     Dates: start: 20140404
  2. POMALIDOMIDE [Suspect]
     Active Substance: POMALIDOMIDE
     Indication: PLASMA CELL MYELOMA
     Route: 048
     Dates: start: 20131115, end: 20161005
  3. ASPIRIN. [Concomitant]
     Active Substance: ASPIRIN
     Indication: THROMBOSIS PROPHYLAXIS
     Route: 065
  4. G-CSF [Concomitant]
     Active Substance: GRANULOCYTE COLONY-STIMULATING FACTOR NOS
     Dosage: RATIO 48 MIO ONCE WEEKLY
     Route: 065
     Dates: start: 20140307
  5. G-CSF [Concomitant]
     Active Substance: GRANULOCYTE COLONY-STIMULATING FACTOR NOS
     Indication: SUPPORTIVE CARE
     Dosage: RATIO 48 MIO EVERY 4TH DAY
     Route: 065
     Dates: start: 20131115

REACTIONS (3)
  - Diarrhoea [Unknown]
  - Fall [Unknown]
  - Lumbar vertebral fracture [Unknown]
